FAERS Safety Report 9087459 (Version 1)
Quarter: 2013Q1

REPORT INFORMATION
  Report Type: Spontaneous
  Country: GB (occurrence: GB)
  Receive Date: 20130201
  Receipt Date: 20130201
  Transmission Date: 20140127
  Serious: Yes (Hospitalization, Other)
  Sender: FDA-Public Use
  Company Number: PHHY2013GB008686

PATIENT
  Age: 76 Year
  Sex: Female
  Weight: 123 kg

DRUGS (9)
  1. WARFARIN [Suspect]
     Indication: ATRIAL FIBRILLATION
     Dosage: 3 MG, UNK
     Route: 048
     Dates: start: 20130113, end: 20130113
  2. CRANBERRY [Interacting]
     Indication: URINARY TRACT INFECTION
     Dosage: 200 MG, TID
  3. LOSARTAN [Concomitant]
  4. FUROSEMIDE [Concomitant]
  5. PARACETAMOL [Concomitant]
  6. VENLAFAXINE [Concomitant]
  7. OMEPRAZOLE [Concomitant]
  8. CEFALEXIN [Concomitant]
  9. GENTAMICIN [Concomitant]

REACTIONS (4)
  - Drug prescribing error [Unknown]
  - Medication error [Unknown]
  - International normalised ratio increased [Unknown]
  - Drug interaction [Recovered/Resolved]
